FAERS Safety Report 8124752-2 (Version None)
Quarter: 2012Q1

REPORT INFORMATION
  Report Type: 
  Country: None (occurrence: None)
  Receive Date: 20120209
  Receipt Date: 20120203
  Transmission Date: 20120608
  Serious: Yes (Other)
  Sender: FDA-Public Use
  Company Number: US-PFIZER INC-2011056662

PATIENT
  Age: 35 Year
  Sex: Female

DRUGS (1)
  1. PREGABALIN [Suspect]
     Indication: PAIN
     Dosage: 200 MG, 3X/DAY

REACTIONS (10)
  - HEADACHE [None]
  - NAUSEA [None]
  - DRUG ABUSE [None]
  - ABDOMINAL PAIN [None]
  - DRUG WITHDRAWAL SYNDROME [None]
  - DRUG DIVERSION [None]
  - DIARRHOEA [None]
  - PAIN [None]
  - TREATMENT NONCOMPLIANCE [None]
  - CONDITION AGGRAVATED [None]
